FAERS Safety Report 10242192 (Version 1)
Quarter: 2014Q2

REPORT INFORMATION
  Report Type: Spontaneous
  Country: SE (occurrence: SE)
  Receive Date: 20140617
  Receipt Date: 20140617
  Transmission Date: 20141212
  Serious: Yes (Hospitalization, Other)
  Sender: FDA-Public Use
  Company Number: SE-ASTRAZENECA-2014SE41280

PATIENT
  Age: 34 Year
  Sex: Male

DRUGS (6)
  1. SEROQUEL [Suspect]
     Dosage: UNCLEAR DOSE, A COUPLE OF BLISTERS, ONCE
     Route: 048
     Dates: start: 20130227, end: 20130227
  2. PROPAVAN (SANOFI-AVENTIS AB) [Suspect]
     Route: 048
     Dates: start: 20130227, end: 20130227
  3. ATARAX [Concomitant]
  4. BRICANYL TURBUHALER [Concomitant]
  5. STESOLID [Concomitant]
  6. VALIUM [Concomitant]

REACTIONS (2)
  - Toxicity to various agents [Recovered/Resolved]
  - Hyporesponsive to stimuli [Recovering/Resolving]
